FAERS Safety Report 4315502-6 (Version None)
Quarter: 2004Q1

REPORT INFORMATION
  Report Type: 
  Country: None (occurrence: None)
  Receive Date: 20040311
  Receipt Date: 20040225
  Transmission Date: 20041129
  Serious: Yes (Hospitalization)
  Sender: FDA-Public Use
  Company Number: WAES 0402USA01926

PATIENT
  Sex: Female

DRUGS (1)
  1. ALDOMET [Suspect]
     Indication: HYPERTENSION
     Route: 048
     Dates: end: 20040227

REACTIONS (9)
  - AUTOPHONY [None]
  - DRUG EXPOSURE DURING PREGNANCY [None]
  - HEADACHE [None]
  - MIGRAINE [None]
  - PARAESTHESIA [None]
  - PHOTOPSIA [None]
  - SOMNOLENCE [None]
  - TINNITUS [None]
  - VISUAL BRIGHTNESS [None]
